FAERS Safety Report 23825991 (Version 1)
Quarter: 2024Q2

REPORT INFORMATION
  Report Type: Spontaneous
  Country: US (occurrence: US)
  Receive Date: 20240507
  Receipt Date: 20240507
  Transmission Date: 20240716
  Serious: No
  Sender: FDA-Public Use
  Company Number: US-PFIZER INC-PV202400057944

PATIENT
  Age: 55 Year
  Sex: Female
  Weight: 45.986 kg

DRUGS (2)
  1. IBRANCE [Suspect]
     Active Substance: PALBOCICLIB
     Indication: Hormone receptor positive HER2 negative breast cancer
     Dosage: 75 MG, CYCLIC (DAILY, ON DAYS 1-21 AND A 28 DAY CYCLE)
     Route: 048
     Dates: start: 20210524
  2. FEMARA [Concomitant]
     Active Substance: LETROZOLE
     Indication: Breast cancer
     Dosage: UNK
     Dates: start: 20210223

REACTIONS (2)
  - Stomatitis [Unknown]
  - Carbohydrate antigen 15-3 increased [Unknown]
